FAERS Safety Report 11800610 (Version 1)
Quarter: 2015Q4

REPORT INFORMATION
  Report Type: Spontaneous
  Country: DE (occurrence: DE)
  Receive Date: 20151204
  Receipt Date: 20151204
  Transmission Date: 20160305
  Serious: Yes (Hospitalization, Other)
  Sender: FDA-Public Use
  Company Number: DE-ROCHE-1670198

PATIENT
  Age: 77 Year
  Sex: Male
  Weight: 79 kg

DRUGS (6)
  1. COTRIM [Concomitant]
     Active Substance: SULFAMETHOXAZOLE\TRIMETHOPRIM
  2. CELLCEPT [Suspect]
     Active Substance: MYCOPHENOLATE MOFETIL\MYCOPHENOLATE MOFETIL HYDROCHLORIDE
     Indication: RENAL TRANSPLANT
     Route: 065
  3. VALGANCICLOVIR [Concomitant]
     Active Substance: VALGANCICLOVIR
     Route: 065
  4. METHYLPREDNISOLON [Concomitant]
     Active Substance: METHYLPREDNISOLONE
     Indication: RENAL TRANSPLANT
     Dosage: 3X 500 MG
     Route: 042
  5. BASILIXIMAB [Concomitant]
     Active Substance: BASILIXIMAB
     Indication: RENAL TRANSPLANT
  6. TACROLIMUS. [Concomitant]
     Active Substance: TACROLIMUS
     Indication: RENAL TRANSPLANT

REACTIONS (12)
  - Neutropenia [Unknown]
  - Anal abscess [Unknown]
  - Transplant rejection [Recovered/Resolved]
  - Pancytopenia [Unknown]
  - Cytomegalovirus infection [Unknown]
  - Arteriosclerosis [Unknown]
  - Arterial disorder [Unknown]
  - Toxicity to various agents [Not Recovered/Not Resolved]
  - Azotaemia [Unknown]
  - Pneumonia [Unknown]
  - Urinary tract infection [Unknown]
  - Acute kidney injury [Unknown]
